FAERS Safety Report 8330134-0 (Version None)
Quarter: 2012Q2

REPORT INFORMATION
  Report Type: 
  Country: None (occurrence: None)
  Receive Date: 20120502
  Receipt Date: 20120426
  Transmission Date: 20120825
  Serious: Yes (Other)
  Sender: FDA-Public Use
  Company Number: FR-PFIZER INC-2012071974

PATIENT
  Age: 4 Year
  Sex: Female

DRUGS (4)
  1. PEDIATRIC ADVIL [Suspect]
     Indication: PYREXIA
     Dosage: UNK
     Dates: start: 20120101
  2. PEDIATRIC ADVIL [Suspect]
     Indication: EAR PAIN
  3. CELESTONE [Concomitant]
     Dosage: UNK
     Dates: start: 20120101
  4. AUGMENTIN [Suspect]
     Dosage: UNK
     Dates: start: 20120101

REACTIONS (5)
  - POOR QUALITY DRUG ADMINISTERED [None]
  - LIP OEDEMA [None]
  - EYELID OEDEMA [None]
  - HYPERSENSITIVITY [None]
  - URTICARIA [None]
